FAERS Safety Report 6086068-8 (Version None)
Quarter: 2009Q1

REPORT INFORMATION
  Report Type: 
  Country: None (occurrence: None)
  Receive Date: 20090217
  Receipt Date: 20090217
  Transmission Date: 20090719
  Serious: Yes (Hospitalization, Disabling)
  Sender: FDA-Public Use
  Company Number: None

PATIENT
  Age: 34 Year
  Sex: Female
  Weight: 58.9676 kg

DRUGS (1)
  1. ZOLOFT [Suspect]
     Indication: DEPRESSION
     Dates: start: 20081210, end: 20090207

REACTIONS (12)
  - CHILLS [None]
  - CLONUS [None]
  - COLD SWEAT [None]
  - DISORIENTATION [None]
  - HYPERHIDROSIS [None]
  - LOSS OF CONSCIOUSNESS [None]
  - MUSCLE SPASMS [None]
  - MYDRIASIS [None]
  - RESTLESSNESS [None]
  - SYNCOPE [None]
  - TACHYCARDIA [None]
  - VOMITING [None]
